FAERS Safety Report 13675162 (Version 3)
Quarter: 2018Q1

REPORT INFORMATION
  Report Type: Spontaneous
  Country: US (occurrence: US)
  Receive Date: 20170621
  Receipt Date: 20180124
  Transmission Date: 20180508
  Serious: Yes (Hospitalization, Other)
  Sender: FDA-Public Use
  Company Number: US-ASTRAZENECA-2017SE62560

PATIENT
  Age: 19534 Day
  Sex: Female
  Weight: 198 kg

DRUGS (32)
  1. NEXIUM [Suspect]
     Active Substance: ESOMEPRAZOLE MAGNESIUM
     Indication: GASTRIC PH DECREASED
     Route: 048
     Dates: start: 2009, end: 2015
  2. PRILOSEC [Suspect]
     Active Substance: OMEPRAZOLE MAGNESIUM
     Indication: GASTRIC PH DECREASED
     Route: 048
     Dates: start: 2009, end: 2015
  3. FLEXERIL [Concomitant]
     Active Substance: CYCLOBENZAPRINE HYDROCHLORIDE
     Route: 048
     Dates: start: 20111025
  4. MEVACOR [Concomitant]
     Active Substance: LOVASTATIN
     Route: 048
     Dates: start: 20111025
  5. GLUCOPHAGE XR [Concomitant]
     Active Substance: METFORMIN HYDROCHLORIDE
     Dates: start: 20011129
  6. AMITRIPTYLINE [Concomitant]
     Active Substance: AMITRIPTYLINE
     Dates: start: 20011231
  7. EFFEXOR [Concomitant]
     Active Substance: VENLAFAXINE HYDROCHLORIDE
  8. PROZAC [Concomitant]
     Active Substance: FLUOXETINE HYDROCHLORIDE
     Dates: start: 19980508
  9. DIOVAN [Concomitant]
     Active Substance: VALSARTAN
     Dates: start: 20030208
  10. LIPITOR [Concomitant]
     Active Substance: ATORVASTATIN CALCIUM
     Dates: start: 20030513
  11. ACTOS [Concomitant]
     Active Substance: PIOGLITAZONE HYDROCHLORIDE
     Dates: start: 20050506
  12. CELEXA [Concomitant]
     Active Substance: CITALOPRAM HYDROBROMIDE
     Route: 048
     Dates: start: 20111025
  13. AVAPRO [Concomitant]
     Active Substance: IRBESARTAN
     Dates: start: 20050714
  14. AVANDIA [Concomitant]
     Active Substance: ROSIGLITAZONE MALEATE
     Dates: start: 20020503
  15. FUROSEMIDE. [Concomitant]
     Active Substance: FUROSEMIDE
     Dates: start: 20020708
  16. COZAAR [Concomitant]
     Active Substance: LOSARTAN POTASSIUM
     Dates: start: 20060113
  17. DILTIAZEM. [Concomitant]
     Active Substance: DILTIAZEM
     Dates: start: 20070921
  18. WARFARIN [Concomitant]
     Active Substance: WARFARIN
     Dates: start: 20071108
  19. PRILOSEC [Suspect]
     Active Substance: OMEPRAZOLE MAGNESIUM
     Indication: GASTRIC PH DECREASED
     Route: 048
     Dates: start: 19990917
  20. BETAPACE [Concomitant]
     Active Substance: SOTALOL HYDROCHLORIDE
     Route: 048
     Dates: start: 20111025
  21. WARFARIN [Concomitant]
     Active Substance: WARFARIN
     Dosage: 10 MG ON SAU, MON, WED, THURS AND FRIDAY AND 5 MG ON TUES AND SATURDAY
     Route: 048
     Dates: start: 20111025
  22. LORATADINE. [Concomitant]
     Active Substance: LORATADINE
  23. NEXIUM [Suspect]
     Active Substance: ESOMEPRAZOLE MAGNESIUM
     Indication: GASTRIC PH DECREASED
     Route: 048
     Dates: start: 20090618
  24. INSULIN GLARGINE [Concomitant]
     Active Substance: INSULIN GLARGINE
     Dosage: 50 UNITS IN SKIN NIGHTLY
     Dates: start: 20111025
  25. LISINOPRIL AND HYDROCHLOROTHIAZIDE [Concomitant]
     Active Substance: HYDROCHLOROTHIAZIDE\LISINOPRIL
     Dosage: 20-12.5 MG DAILY
     Route: 048
     Dates: start: 20111025
  26. MEDROXYPROGESTERONE [Concomitant]
     Active Substance: MEDROXYPROGESTERONE
     Dates: start: 19980508
  27. AMARYL [Concomitant]
     Active Substance: GLIMEPIRIDE
     Dates: start: 20020503
  28. CYMBALTA [Concomitant]
     Active Substance: DULOXETINE HYDROCHLORIDE
     Dates: start: 20051209
  29. CEFTRIAXONE. [Concomitant]
     Active Substance: CEFTRIAXONE
     Dates: start: 20150904
  30. CLINDAMYCIN. [Concomitant]
     Active Substance: CLINDAMYCIN
  31. APIDRA [Concomitant]
     Active Substance: INSULIN GLULISINE
     Dosage: 40 UNITS IN SKIN THREE TIMES DAILY BEFORE MEALS
     Dates: start: 20111025
  32. METOPROLOL. [Concomitant]
     Active Substance: METOPROLOL
     Dates: start: 20160814

REACTIONS (5)
  - Acute kidney injury [Unknown]
  - End stage renal disease [Unknown]
  - Chronic kidney disease [Unknown]
  - Renal failure [Unknown]
  - Tubulointerstitial nephritis [Unknown]

NARRATIVE: CASE EVENT DATE: 20111025
